FAERS Safety Report 22680408 (Version 9)
Quarter: 2025Q1

REPORT INFORMATION
  Report Type: Report from Study
  Country: US (occurrence: US)
  Receive Date: 20230707
  Receipt Date: 20250204
  Transmission Date: 20250408
  Serious: No
  Sender: TAKEDA
  Company Number: US-TAKEDA-2021TUS076999

PATIENT
  Age: 57 Year
  Sex: Female
  Weight: 67 kg

DRUGS (22)
  1. GLASSIA [Suspect]
     Active Substance: .ALPHA.1-PROTEINASE INHIBITOR HUMAN
     Indication: Alpha-1 antitrypsin deficiency
     Dosage: UNK UNK, 1/WEEK
     Dates: start: 20211123
  2. GLASSIA [Suspect]
     Active Substance: .ALPHA.1-PROTEINASE INHIBITOR HUMAN
     Dosage: 60 MILLIGRAM, 1/WEEK
  3. GLASSIA [Suspect]
     Active Substance: .ALPHA.1-PROTEINASE INHIBITOR HUMAN
     Dosage: 60 MILLIGRAM/KILOGRAM, 1/WEEK
  4. DIPHENHYDRAMINE [Concomitant]
     Active Substance: DIPHENHYDRAMINE
  5. HEPARIN [Concomitant]
     Active Substance: HEPARIN SODIUM
  6. SODIUM CHLORIDE [Concomitant]
     Active Substance: SODIUM CHLORIDE
  7. EPINEPHRINE [Concomitant]
     Active Substance: EPINEPHRINE
  8. AZITHROMYCIN [Concomitant]
     Active Substance: AZITHROMYCIN
  9. ZYRTEC [Concomitant]
     Active Substance: CETIRIZINE HYDROCHLORIDE
  10. TRELEGY ELLIPTA [Concomitant]
     Active Substance: FLUTICASONE FUROATE\UMECLIDINIUM BROMIDE\VILANTEROL TRIFENATATE
  11. ALBUTEROL\IPRATROPIUM [Concomitant]
     Active Substance: ALBUTEROL\IPRATROPIUM
  12. OXYGEN [Concomitant]
     Active Substance: OXYGEN
  13. PROZAC [Concomitant]
     Active Substance: FLUOXETINE HYDROCHLORIDE
  14. PROAIR HFA [Concomitant]
     Active Substance: ALBUTEROL SULFATE
  15. DIFLUCAN [Concomitant]
     Active Substance: FLUCONAZOLE
  16. METHYLTESTOST [Concomitant]
  17. AER [Concomitant]
  18. PREDNISONE [Concomitant]
     Active Substance: PREDNISONE
  19. ESTROGENS\METHYLTESTOSTERONE [Concomitant]
     Active Substance: ESTROGENS\METHYLTESTOSTERONE
  20. DIPHENHYDRAMINE HYDROCHLORIDE [Concomitant]
     Active Substance: DIPHENHYDRAMINE HYDROCHLORIDE
  21. GABAPENTIN [Concomitant]
     Active Substance: GABAPENTIN
  22. TIZANIDINE HYDROCHLORIDE [Concomitant]
     Active Substance: TIZANIDINE HYDROCHLORIDE

REACTIONS (29)
  - Infusion related reaction [Recovering/Resolving]
  - Product dose omission issue [Unknown]
  - Synovial cyst [Unknown]
  - COVID-19 [Unknown]
  - Arthralgia [Unknown]
  - Erythema [Unknown]
  - Infusion site extravasation [Unknown]
  - Lymph node pain [Unknown]
  - Lymphadenopathy [Unknown]
  - Respiratory tract congestion [Unknown]
  - Catheter site swelling [Unknown]
  - Osteoarthritis [Unknown]
  - Drug ineffective [Unknown]
  - Insurance issue [Unknown]
  - Osteoporosis [Unknown]
  - Post procedural swelling [Unknown]
  - Post procedural erythema [Unknown]
  - Procedural pain [Recovering/Resolving]
  - Device issue [Unknown]
  - Product distribution issue [Unknown]
  - Respiratory tract infection [Unknown]
  - Illness [Unknown]
  - Malaise [Unknown]
  - Sinusitis [Unknown]
  - Rash [Unknown]
  - Dyspnoea [Unknown]
  - Fatigue [Unknown]
  - Headache [Unknown]
  - Wrong technique in product usage process [Unknown]

NARRATIVE: CASE EVENT DATE: 20231124
